FAERS Safety Report 7490582 (Version 6)
Quarter: 2013Q2

REPORT INFORMATION
  Report Type: Report from Study
  Country: JP (occurrence: JP)
  Receive Date: 20100720
  Receipt Date: 20130527
  Transmission Date: 20140414
  Serious: Yes (Death)
  Sender: FDA-Public Use
  Company Number: JP-BRISTOL-MYERS SQUIBB COMPANY-15192347

PATIENT
  Age: 70 Year
  Sex: Male
  Weight: 86.1 kg

DRUGS (14)
  1. SPRYCEL [Suspect]
     Indication: ACUTE LYMPHOCYTIC LEUKAEMIA
     Dosage: 14SP-21OC09,17NOV09-07MAY10;17NV09-20DC09 (140MG)?28DC09-07MAY2010,REST:19MY10-21JUN10.?24SEP-21OC
     Route: 048
     Dates: start: 20090924, end: 20100621
  2. WARFARIN [Concomitant]
     Indication: ATRIAL FIBRILLATION
     Dosage: FORM: TABLET.
     Route: 048
  3. PARIET [Concomitant]
     Indication: PROPHYLAXIS
     Dosage: FORM: TABLET.
     Route: 048
     Dates: end: 20100621
  4. ENTERONON-R [Concomitant]
     Indication: PROPHYLAXIS
     Dosage: POWDER
     Route: 048
     Dates: end: 20100621
  5. MAGLAX [Concomitant]
     Indication: PROPHYLAXIS
     Route: 048
     Dates: end: 20100621
  6. FORSENID [Concomitant]
     Indication: PROPHYLAXIS
     Dosage: FORM: TABLET.
     Route: 048
     Dates: end: 20100621
  7. URINORM [Concomitant]
     Indication: PROPHYLAXIS
     Dosage: FORM: TABLET.
     Route: 048
     Dates: end: 20100621
  8. LASIX [Concomitant]
     Route: 048
     Dates: end: 20100621
  9. CYLOCIDE [Concomitant]
     Indication: ACUTE LYMPHOCYTIC LEUKAEMIA
     Dosage: INJ
     Route: 037
     Dates: start: 20090924, end: 20091117
  10. METHOTREXATE [Concomitant]
     Indication: ACUTE LYMPHOCYTIC LEUKAEMIA
     Dosage: INJ
     Route: 037
     Dates: start: 20090924, end: 20091117
  11. DECADRON [Concomitant]
     Indication: ACUTE LYMPHOCYTIC LEUKAEMIA
     Dosage: INJ
     Route: 037
     Dates: start: 20090924, end: 20091117
  12. BAKTAR [Concomitant]
     Indication: PROPHYLAXIS
     Dosage: 1 D.F:2TABS
     Route: 048
     Dates: start: 20090228
  13. PREDONINE [Concomitant]
     Indication: ACUTE LYMPHOCYTIC LEUKAEMIA
     Dosage: 16DC09-20DC;13JAN10-17JAN;10FB-14FB;10MAR-14MAR;7APR-11APR;30APR-4MAY;02JUN-06JUN10
     Route: 048
     Dates: start: 20091216, end: 20100606
  14. ONCOVIN [Concomitant]
     Indication: ACUTE LYMPHOCYTIC LEUKAEMIA
     Dosage: 16DC09;13JAN10-13JAN;10FB-10FB;10MAR-10MAR;7APR-7APR;07MAY;02JUN-02JUN10
     Route: 042
     Dates: start: 20091216, end: 20100602

REACTIONS (2)
  - Respiratory failure [Fatal]
  - Pleural effusion [Recovered/Resolved]
